FAERS Safety Report 4832677-0 (Version None)
Quarter: 2005Q4

REPORT INFORMATION
  Report Type: 
  Country: None (occurrence: None)
  Receive Date: 20051117
  Receipt Date: 20051117
  Transmission Date: 20060501
  Serious: Yes (Other)
  Sender: FDA-Public Use
  Company Number: None

PATIENT
  Sex: Female
  Weight: 68 kg

DRUGS (6)
  1. PANTOPRAZOLE [Suspect]
     Indication: PROPHYLAXIS
     Dosage: 40 MG   AT BEDTIME  IV
     Route: 042
     Dates: start: 20050910, end: 20050914
  2. PANTOPRAZOLE [Suspect]
     Indication: STRESS ULCER
     Dosage: 40 MG   AT BEDTIME  IV
     Route: 042
     Dates: start: 20050910, end: 20050914
  3. PANTOPRAZOLE [Suspect]
     Indication: PROPHYLAXIS
     Dosage: 40 MG   AT BEDTIME   PO
     Route: 048
     Dates: start: 20050915, end: 20050917
  4. PANTOPRAZOLE [Suspect]
     Indication: STRESS ULCER
     Dosage: 40 MG   AT BEDTIME   PO
     Route: 048
     Dates: start: 20050915, end: 20050917
  5. MEPERIDINE [Concomitant]
  6. METOPROLOL [Concomitant]

REACTIONS (2)
  - PANCREATITIS [None]
  - PLATELET COUNT DECREASED [None]
